FAERS Safety Report 23745778 (Version 2)
Quarter: 2024Q2

REPORT INFORMATION
  Report Type: Report from Study
  Country: US (occurrence: US)
  Receive Date: 20240416
  Receipt Date: 20240418
  Transmission Date: 20240716
  Serious: Yes (Hospitalization, Other)
  Sender: FDA-Public Use
  Company Number: US-ABBVIE-5720183

PATIENT
  Age: 78 Year
  Sex: Female

DRUGS (2)
  1. VENCLEXTA [Suspect]
     Active Substance: VENETOCLAX
     Indication: Acute myeloid leukaemia
     Dosage: FORM STRENGTH: 100 MG?TOOK 1 TABLET BY MOUTH ONCE DAILY WITH FOOD AND A FULL GLASS OF WATER ?STAR...
     Route: 048
  2. VENCLEXTA [Suspect]
     Active Substance: VENETOCLAX
     Indication: Acute myeloid leukaemia
     Dosage: FORM STRENGTH: 100 MG?TOOK 1 TABLET BY MOUTH ONCE DAILY WITH FOOD AND A FULL GLASS OF WATER
     Route: 048
     Dates: end: 202403

REACTIONS (9)
  - Transfusion [Recovering/Resolving]
  - Nausea [Recovered/Resolved]
  - Blood potassium decreased [Recovering/Resolving]
  - Blood magnesium decreased [Recovering/Resolving]
  - Abdominal pain upper [Recovering/Resolving]
  - Platelet count decreased [Not Recovered/Not Resolved]
  - Hospitalisation [Recovered/Resolved]
  - Illness [Recovering/Resolving]
  - Platelet count abnormal [Not Recovered/Not Resolved]

NARRATIVE: CASE EVENT DATE: 20230401
